FAERS Safety Report 7544462-X (Version None)
Quarter: 2011Q2

REPORT INFORMATION
  Report Type: 
  Country: None (occurrence: None)
  Receive Date: 20110613
  Receipt Date: 20100113
  Transmission Date: 20111010
  Serious: Yes (Death)
  Sender: FDA-Public Use
  Company Number: PHHY2008JP23122

PATIENT
  Sex: Female

DRUGS (3)
  1. ZOLEDRONIC ACID [Suspect]
     Indication: BREAST CANCER
     Dosage: 4 MG, (EVERY 4 WEEK)
     Route: 042
     Dates: start: 20070725, end: 20080212
  2. ARIMIDEX [Concomitant]
     Dosage: 1 DF, UNK
     Route: 048
     Dates: start: 20080213, end: 20080313
  3. FEMARA [Concomitant]
     Indication: BREAST CANCER
     Dosage: 1 DF, UNK
     Route: 048
     Dates: start: 20071218, end: 20080212

REACTIONS (2)
  - NEOPLASM MALIGNANT [None]
  - METASTASES TO LIVER [None]
